FAERS Safety Report 19242164 (Version 2)
Quarter: 2021Q2

REPORT INFORMATION
  Report Type: Spontaneous
  Country: ES (occurrence: ES)
  Receive Date: 20210510
  Receipt Date: 20210604
  Transmission Date: 20210717
  Serious: Yes (Other)
  Sender: FDA-Public Use
  Company Number: ES-TEVA-2021-ES-1910763

PATIENT
  Age: 26 Year
  Sex: Male

DRUGS (1)
  1. EMTRICITABINA/TENOFOVIR DISOPROXILO TEVA 200 MG/245 MG COMPRIMIDOS REC [Suspect]
     Active Substance: EMTRICITABINE\TENOFOVIR DISOPROXIL
     Indication: PROPHYLAXIS
     Dosage: 200 MG / 245 MG
     Route: 048
     Dates: start: 20210305, end: 20210429

REACTIONS (6)
  - Hypersensitivity [Not Recovered/Not Resolved]
  - Erythema nodosum [Not Recovered/Not Resolved]
  - Pruritus [Not Recovered/Not Resolved]
  - Urticaria [Not Recovered/Not Resolved]
  - Acarodermatitis [Not Recovered/Not Resolved]
  - Rash [Not Recovered/Not Resolved]

NARRATIVE: CASE EVENT DATE: 20210403
